FAERS Safety Report 21798315 (Version 1)
Quarter: 2022Q4

REPORT INFORMATION
  Report Type: Spontaneous
  Country: US (occurrence: None)
  Receive Date: 20221230
  Receipt Date: 20221230
  Transmission Date: 20230112
  Serious: No
  Sender: FDA-Public Use
  Company Number: 2022A394464

PATIENT
  Age: 69 Year
  Sex: Male

DRUGS (1)
  1. CALQUENCE [Suspect]
     Active Substance: ACALABRUTINIB
     Indication: Chronic lymphocytic leukaemia
     Route: 048
     Dates: start: 20221116

REACTIONS (7)
  - Headache [Recovering/Resolving]
  - Back pain [Not Recovered/Not Resolved]
  - Blood uric acid increased [Not Recovered/Not Resolved]
  - Alanine aminotransferase increased [Not Recovered/Not Resolved]
  - Blood creatinine increased [Not Recovered/Not Resolved]
  - Dehydration [Not Recovered/Not Resolved]
  - Cardiac murmur [Not Recovered/Not Resolved]

NARRATIVE: CASE EVENT DATE: 20221117
